FAERS Safety Report 4536902-5 (Version None)
Quarter: 2004Q4

REPORT INFORMATION
  Report Type: 
  Country: None (occurrence: None)
  Receive Date: 20041220
  Receipt Date: 20041206
  Transmission Date: 20050328
  Serious: No
  Sender: FDA-Public Use
  Company Number: 2002UW16436

PATIENT
  Age: 64 Year
  Sex: Male

DRUGS (3)
  1. ZESTRIL [Suspect]
     Indication: HYPERTENSION
  2. TENORMIN [Suspect]
  3. DIURETIC [Concomitant]

REACTIONS (4)
  - ERECTILE DYSFUNCTION [None]
  - MYELOPATHY [None]
  - NEUROPATHY PERIPHERAL [None]
  - PERIPHERAL VASCULAR DISORDER [None]
